FAERS Safety Report 9034831 (Version 1)
Quarter: 2013Q1

REPORT INFORMATION
  Report Type: Spontaneous
  Country: US (occurrence: None)
  Receive Date: 20130116
  Receipt Date: 20130116
  Transmission Date: 20140127
  Serious: Yes (Hospitalization)
  Sender: FDA-Public Use
  Company Number: None

PATIENT
  Age: 76 Year
  Sex: Male
  Weight: 107.1 kg

DRUGS (2)
  1. LISINOPRIL [Suspect]
     Indication: HYPERTENSION
     Dosage: 40 MG EVERY DAY PO
     Route: 048
     Dates: start: 20040617
  2. METOPROLOL [Suspect]
     Indication: HYPERTENSION
     Dosage: 12.5 MG BID PO
     Route: 048
     Dates: start: 20070417

REACTIONS (9)
  - Fatigue [None]
  - Dizziness [None]
  - Decreased appetite [None]
  - Fall [None]
  - Limb injury [None]
  - Presyncope [None]
  - Hyperkalaemia [None]
  - Confusional state [None]
  - Syncope [None]
